FAERS Safety Report 7531865-2 (Version None)
Quarter: 2011Q2

REPORT INFORMATION
  Report Type: 
  Country: None (occurrence: None)
  Receive Date: 20110608
  Receipt Date: 20110603
  Transmission Date: 20111010
  Serious: Yes (Death, Hospitalization)
  Sender: FDA-Public Use
  Company Number: JP-SANOFI-AVENTIS-2010SA073842

PATIENT
  Age: 63 Year
  Sex: Male

DRUGS (7)
  1. OXALIPLATIN [Suspect]
     Indication: RECTAL CANCER
     Route: 041
     Dates: start: 20100331, end: 20100331
  2. OXALIPLATIN [Suspect]
     Route: 041
     Dates: start: 20100623, end: 20100623
  3. CAPECITABINE [Suspect]
     Indication: RECTAL CANCER
     Route: 048
     Dates: start: 20100331, end: 20100707
  4. OXALIPLATIN [Suspect]
     Route: 041
     Dates: start: 20100512, end: 20100512
  5. OXALIPLATIN [Suspect]
     Route: 041
     Dates: start: 20100421, end: 20100421
  6. OXALIPLATIN [Suspect]
     Route: 041
     Dates: start: 20100602, end: 20100602
  7. BEVACIZUMAB [Suspect]
     Indication: RECTAL CANCER
     Route: 041
     Dates: start: 20100512, end: 20100623

REACTIONS (3)
  - NEUROPATHY PERIPHERAL [None]
  - DEHYDRATION [None]
  - GASTRIC ULCER [None]
